FAERS Safety Report 7647971-8 (Version None)
Quarter: 2011Q3

REPORT INFORMATION
  Report Type: 
  Country: None (occurrence: None)
  Receive Date: 20110801
  Receipt Date: 20110721
  Transmission Date: 20111222
  Serious: Yes (Other)
  Sender: FDA-Public Use
  Company Number: AU-JNJFOC-20110707768

PATIENT
  Sex: Female

DRUGS (7)
  1. ACETAMINOPHEN AND CODEINE PHOSPHATE [Concomitant]
  2. VITAMIN D [Concomitant]
  3. LIPITOR [Concomitant]
  4. METHOTREXATE [Concomitant]
  5. FOLIC ACID [Concomitant]
  6. PERINDOPRIL [Concomitant]
  7. INFLIXIMAB, RECOMBINANT [Suspect]
     Indication: PRODUCT USED FOR UNKNOWN INDICATION
     Route: 042
     Dates: start: 20090201, end: 20110301

REACTIONS (1)
  - LUPUS-LIKE SYNDROME [None]
